FAERS Safety Report 9443094 (Version 2)
Quarter: 2013Q4

REPORT INFORMATION
  Report Type: Spontaneous
  Country: US (occurrence: US)
  Receive Date: 20130806
  Receipt Date: 20131230
  Transmission Date: 20140711
  Serious: Yes (Hospitalization)
  Sender: FDA-Public Use
  Company Number: PHHO2013US009801

PATIENT
  Age: 66 Year
  Sex: Male

DRUGS (5)
  1. MYFORTIC [Suspect]
     Indication: RENAL TRANSPLANT
     Dosage: 720 MG, BID
  2. PREDNISONE [Suspect]
     Indication: RENAL TRANSPLANT
     Dosage: UNK
  3. BELATACEPT [Suspect]
     Indication: RENAL TRANSPLANT
     Dosage: 10 MG, PER KG
     Dates: start: 20130314
  4. ANTITHYMOCYTE IMMUNOGLOBULIN [Suspect]
     Indication: RENAL TRANSPLANT
     Dosage: 4.5 MG/KG
     Dates: start: 20130314
  5. VANCOMYCIN [Concomitant]
     Dosage: UNK

REACTIONS (9)
  - Angina pectoris [Unknown]
  - Perinephric collection [Unknown]
  - Seroma [Unknown]
  - Wound haematoma [Recovered/Resolved]
  - Anaemia [Recovered/Resolved]
  - Cellulitis [Unknown]
  - Pyrexia [Recovered/Resolved]
  - Escherichia infection [Unknown]
  - Enterococcal infection [Unknown]
